FAERS Safety Report 25881077 (Version 2)
Quarter: 2025Q4

REPORT INFORMATION
  Report Type: Spontaneous
  Country: EU (occurrence: EU)
  Receive Date: 20251004
  Receipt Date: 20251207
  Transmission Date: 20260117
  Serious: Yes (Other)
  Sender: CSL BEHRING
  Company Number: EU-BEH-2025219666

PATIENT
  Age: 65 Year
  Sex: Female

DRUGS (4)
  1. PRIVIGEN [Suspect]
     Active Substance: HUMAN IMMUNOGLOBULIN G
     Indication: Pneumonia
     Dosage: 0.4 MG/KG, QMT
     Route: 042
     Dates: start: 202004, end: 2023
  2. PRIVIGEN [Suspect]
     Active Substance: HUMAN IMMUNOGLOBULIN G
     Indication: Hypogammaglobulinaemia
     Dosage: 30 G
     Route: 042
     Dates: start: 2023
  3. PRIVIGEN [Suspect]
     Active Substance: HUMAN IMMUNOGLOBULIN G
     Dosage: UNK
     Route: 065
     Dates: start: 20250425
  4. PRIVIGEN [Suspect]
     Active Substance: HUMAN IMMUNOGLOBULIN G
     Dosage: UNK
     Route: 065
     Dates: start: 20250425

REACTIONS (6)
  - Glomerulosclerosis [Recovered/Resolved]
  - Renal arteriosclerosis [Recovered/Resolved]
  - Renal failure [Recovered/Resolved]
  - Glomerular filtration rate decreased [Recovering/Resolving]
  - Blood creatinine increased [Unknown]
  - Blood creatinine increased [Unknown]

NARRATIVE: CASE EVENT DATE: 20200101
